FAERS Safety Report 21373062 (Version 1)
Quarter: 2022Q3

REPORT INFORMATION
  Report Type: Report from Study
  Country: US (occurrence: US)
  Receive Date: 20220924
  Receipt Date: 20220924
  Transmission Date: 20221027
  Serious: Yes (Other)
  Sender: FDA-Public Use
  Company Number: US-ABBVIE-4129324

PATIENT
  Sex: Female

DRUGS (4)
  1. HUMIRA [Suspect]
     Active Substance: ADALIMUMAB
     Indication: Rheumatoid arthritis
     Route: 058
  2. Pfizer/BioNTech [Concomitant]
     Indication: COVID-19 immunisation
     Dosage: DOSAGE: 1 ONCE FIRST DOSE
     Route: 030
     Dates: start: 20210302, end: 20210302
  3. Pfizer/BioNTech [Concomitant]
     Indication: COVID-19 immunisation
     Dosage: DOSAGE: 1 ONCE SECOND DOSE
     Route: 030
     Dates: start: 20210405, end: 20210405
  4. Pfizer/BioNTech [Concomitant]
     Indication: COVID-19 immunisation
     Dosage: DOSAGE: 1 ONCE THIRD DOSE
     Route: 030
     Dates: start: 20211015, end: 20211015

REACTIONS (3)
  - Carpal tunnel syndrome [Unknown]
  - Trigger finger [Unknown]
  - Arthritis [Unknown]
